FAERS Safety Report 23353787 (Version 1)
Quarter: 2024Q1

REPORT INFORMATION
  Report Type: Spontaneous
  Country: US (occurrence: US)
  Receive Date: 20240101
  Receipt Date: 20240101
  Transmission Date: 20240409
  Serious: No
  Sender: FDA-Public Use
  Company Number: US-PURDUE PHARMA-USA-2023-0305934

PATIENT
  Sex: Male

DRUGS (2)
  1. OXYCODONE HYDROCHLORIDE [Suspect]
     Active Substance: OXYCODONE HYDROCHLORIDE
     Indication: Pain management
     Dosage: 20 MILLIGRAM, (5 TABLETS A DAY)
     Route: 048
  2. FENTANYL [Concomitant]
     Active Substance: FENTANYL\FENTANYL CITRATE
     Indication: Pain
     Dosage: 50 MCG/HR, (EVERY 2 DAYS)
     Route: 062

REACTIONS (2)
  - Drug ineffective [Unknown]
  - Product size issue [Unknown]

NARRATIVE: CASE EVENT DATE: 20231022
